FAERS Safety Report 13870450 (Version 1)
Quarter: 2017Q3

REPORT INFORMATION
  Report Type: Report from Study
  Country: JP (occurrence: JP)
  Receive Date: 20170815
  Receipt Date: 20170815
  Transmission Date: 20171127
  Serious: Yes (Death)
  Sender: FDA-Public Use
  Company Number: JP-ARIAD PHARMACEUTICALS, INC-2017JP008728

PATIENT
  Sex: Male
  Weight: 56 kg

DRUGS (4)
  1. CYLOCIDE [Concomitant]
     Active Substance: CYTARABINE
     Indication: CHRONIC MYELOID LEUKAEMIA
     Dosage: 1400 MG/M2, *2
     Route: 065
     Dates: start: 20161117, end: 20161121
  2. BOSULIF [Concomitant]
     Active Substance: BOSUTINIB MONOHYDRATE
     Indication: CHRONIC MYELOID LEUKAEMIA
     Dosage: 300 MG, DAILY DOSE
     Route: 065
     Dates: start: 20161206, end: 20161209
  3. CYLOCIDE [Concomitant]
     Active Substance: CYTARABINE
     Dosage: LOW DOSE, UNK
     Route: 065
     Dates: start: 20161213, end: 20161219
  4. ICLUSIG [Suspect]
     Active Substance: PONATINIB
     Indication: CHRONIC MYELOID LEUKAEMIA TRANSFORMATION
     Dosage: 45 MG, QD
     Route: 048
     Dates: start: 20161209, end: 20161227

REACTIONS (2)
  - Chronic myeloid leukaemia transformation [Fatal]
  - Drug effect incomplete [Unknown]
